FAERS Safety Report 6693399-7 (Version None)
Quarter: 2010Q2

REPORT INFORMATION
  Report Type: 
  Country: None (occurrence: None)
  Receive Date: 20100420
  Receipt Date: 20100409
  Transmission Date: 20101027
  Serious: Yes (Other)
  Sender: FDA-Public Use
  Company Number: 2010US000544

PATIENT
  Age: 59 Year
  Sex: Male

DRUGS (2)
  1. AMBISOME [Suspect]
     Indication: SINUSITIS FUNGAL
     Dosage: 130 MG, UID/QD, IV NOS
     Route: 042
     Dates: start: 20100107
  2. VFEND [Concomitant]

REACTIONS (4)
  - BLOOD CREATINE PHOSPHOKINASE INCREASED [None]
  - DRUG INEFFECTIVE [None]
  - HALLUCINATION, VISUAL [None]
  - HYPOKALAEMIA [None]
